FAERS Safety Report 4844497-1 (Version None)
Quarter: 2005Q4

REPORT INFORMATION
  Report Type: 
  Country: None (occurrence: None)
  Receive Date: 20051203
  Receipt Date: 20030516
  Transmission Date: 20060501
  Serious: Yes (Hospitalization)
  Sender: FDA-Public Use
  Company Number: PHFR2003GB02145

PATIENT
  Age: 58 Year
  Sex: Male
  Weight: 65.4 kg

DRUGS (4)
  1. HYOSCINE HBR HYT [Suspect]
     Indication: SALIVARY HYPERSECRETION
     Route: 048
     Dates: start: 20030517, end: 20030602
  2. VALPROATE SODIUM [Concomitant]
     Indication: AFFECTIVE DISORDER
     Dosage: UNK, UNK
     Route: 048
  3. CLOZARIL [Suspect]
     Indication: SCHIZOPHRENIA
     Dosage: 100 MG, BID
     Route: 048
     Dates: start: 20030428, end: 20030604
  4. CLOZARIL [Suspect]
     Dosage: 300MG/DAY
     Route: 048
     Dates: end: 20030601

REACTIONS (14)
  - BLOOD CALCIUM DECREASED [None]
  - BLOOD CREATININE INCREASED [None]
  - BLOOD UREA INCREASED [None]
  - BRONCHOPNEUMONIA [None]
  - CHEST X-RAY ABNORMAL [None]
  - DIARRHOEA [None]
  - HYPOTENSION [None]
  - NEUTROPHIL COUNT INCREASED [None]
  - PYREXIA [None]
  - RALES [None]
  - RENAL IMPAIRMENT [None]
  - TACHYCARDIA [None]
  - VOMITING [None]
  - WHITE BLOOD CELL COUNT INCREASED [None]
